FAERS Safety Report 9443495 (Version 1)
Quarter: 2013Q3

REPORT INFORMATION
  Report Type: Spontaneous
  Country: ES (occurrence: ES)
  Receive Date: 20130806
  Receipt Date: 20130806
  Transmission Date: 20140515
  Serious: Yes (Other)
  Sender: FDA-Public Use
  Company Number: PHHY2011ES87302

PATIENT
  Age: 58 Year
  Sex: Female

DRUGS (2)
  1. PARACETAMOL [Suspect]
     Indication: OSTEOARTHRITIS
     Dosage: 650 MG, QD
  2. DEXCHLORPHENIRAMINE [Concomitant]

REACTIONS (1)
  - Liver injury [Unknown]
